FAERS Safety Report 9994718 (Version 1)
Quarter: 2014Q1

REPORT INFORMATION
  Report Type: Spontaneous
  Country: US (occurrence: None)
  Receive Date: 20140306
  Receipt Date: 20140306
  Transmission Date: 20141002
  Serious: Yes (Hospitalization, Other)
  Sender: FDA-Public Use
  Company Number: AUR-APL-2014-02278

PATIENT
  Age: 52 Year
  Sex: Male

DRUGS (8)
  1. ATENOLOL [Suspect]
     Indication: HYPERTENSION
     Route: 048
  2. HYDROCHLOROTHIAZIDE [Suspect]
     Indication: PRODUCT USED FOR UNKNOWN INDICATION
     Route: 048
  3. NEXIUM (ESOMEPRAZOLE MAGNESIUM) [Suspect]
     Indication: GASTROOESOPHAGEAL REFLUX DISEASE
  4. EFFEXOR [Suspect]
     Indication: PRODUCT USED FOR UNKNOWN INDICATION
     Dosage: 300 MG (150 MG, 2 IN 1 D)
  5. PERCOCET [Suspect]
     Indication: PRODUCT USED FOR UNKNOWN INDICATION
     Dosage: 5/325 FOUR TIMES A DAY
  6. TENORMIN [Suspect]
     Indication: PRODUCT USED FOR UNKNOWN INDICATION
     Route: 048
  7. CELEXA [Concomitant]
  8. REGLAN (METOCLOPRAMIDE) [Concomitant]

REACTIONS (32)
  - Cough [None]
  - Bronchial disorder [None]
  - Dysphagia [None]
  - Weight increased [None]
  - Depression [None]
  - Chest pain [None]
  - Presyncope [None]
  - Odynophagia [None]
  - Back pain [None]
  - Osteoarthritis [None]
  - Laryngospasm [None]
  - Burning sensation [None]
  - Intervertebral disc annular tear [None]
  - Paraesthesia [None]
  - Arthralgia [None]
  - Arthralgia [None]
  - Intervertebral disc disorder [None]
  - Dyspnoea [None]
  - Choking sensation [None]
  - Wheezing [None]
  - Sleep disorder due to general medical condition, insomnia type [None]
  - Oesophageal hypomotility [None]
  - Bronchial hyperreactivity [None]
  - Musculoskeletal pain [None]
  - Snoring [None]
  - Fatigue [None]
  - Increased upper airway secretion [None]
  - Weight decreased [None]
  - Hypophagia [None]
  - Cerebrovascular accident [None]
  - Economic problem [None]
  - Malaise [None]
